FAERS Safety Report 6555202-5 (Version None)
Quarter: 2010Q1

REPORT INFORMATION
  Report Type: 
  Country: None (occurrence: None)
  Receive Date: 20100128
  Receipt Date: 20100120
  Transmission Date: 20100710
  Serious: Yes (Other)
  Sender: FDA-Public Use
  Company Number: US-PFIZER INC-2010008101

PATIENT
  Age: 20 Year
  Sex: Male

DRUGS (3)
  1. VORICONAZOLE [Suspect]
     Indication: BRONCHOPULMONARY ASPERGILLOSIS
     Dosage: 200 MG, 2X/DAY
     Route: 048
     Dates: start: 20030301
  2. SULFAMETHOXAZOLE AND TRIMETHOPRIM [Concomitant]
     Indication: CHRONIC GRANULOMATOUS DISEASE
     Dosage: 80MG/400MG BID
  3. ISOTRETINOIN [Concomitant]
     Dosage: 30 MG, 1X/DAY
     Dates: start: 20070101

REACTIONS (1)
  - MALIGNANT MELANOMA IN SITU [None]
